FAERS Safety Report 6696458-8 (Version None)
Quarter: 2010Q2

REPORT INFORMATION
  Report Type: 
  Country: None (occurrence: None)
  Receive Date: 20100426
  Receipt Date: 20090821
  Transmission Date: 20101027
  Serious: No
  Sender: FDA-Public Use
  Company Number: A0795250A

PATIENT
  Age: 68 Year
  Sex: Female
  Weight: 78.2 kg

DRUGS (13)
  1. SEREVENT [Suspect]
     Indication: ASTHMA
     Route: 055
     Dates: start: 19980101, end: 19980101
  2. ADVAIR DISKUS 100/50 [Suspect]
     Indication: CHRONIC OBSTRUCTIVE PULMONARY DISEASE
     Dosage: 1PUFF TWICE PER DAY
     Route: 055
     Dates: start: 20010101
  3. COREG [Suspect]
     Dosage: 3.125MG TWICE PER DAY
     Route: 048
     Dates: start: 20030101
  4. BUDESONIDE [Concomitant]
  5. LASIX [Concomitant]
  6. METOPROLOL SUCCINATE [Concomitant]
  7. DIOVAN [Concomitant]
  8. ASPIRIN [Concomitant]
  9. POTASSIUM [Concomitant]
  10. ZOCOR [Concomitant]
  11. DIFLUCAN [Concomitant]
  12. PREMARIN [Concomitant]
  13. SYNTHROID [Concomitant]

REACTIONS (11)
  - APHONIA [None]
  - BLOOD CHOLESTEROL INCREASED [None]
  - BLOOD GLUCOSE INCREASED [None]
  - CANDIDIASIS [None]
  - DRUG INEFFECTIVE [None]
  - DRY MOUTH [None]
  - MALAISE [None]
  - PRODUCT QUALITY ISSUE [None]
  - STOMATITIS [None]
  - THROAT IRRITATION [None]
  - WEIGHT INCREASED [None]
